FAERS Safety Report 10134438 (Version 1)
Quarter: 2014Q2

REPORT INFORMATION
  Report Type: Spontaneous
  Country: US (occurrence: US)
  Receive Date: 20140428
  Receipt Date: 20140428
  Transmission Date: 20141212
  Serious: No
  Sender: FDA-Public Use
  Company Number: US-ASTRAZENECA-2014SE07821

PATIENT
  Age: 78 Year
  Sex: Female

DRUGS (4)
  1. PULMICORT FLEXHALER [Suspect]
     Indication: CHRONIC OBSTRUCTIVE PULMONARY DISEASE
     Dosage: 180 MCG ONE PUFF BID
     Route: 055
     Dates: start: 201401
  2. ADVAIR DISKUS [Concomitant]
     Indication: CHRONIC OBSTRUCTIVE PULMONARY DISEASE
     Dosage: UNKNOWN UNK
     Route: 055
  3. DILANTIN [Concomitant]
     Indication: EPILEPSY
     Dosage: UNKNOWN UNK
  4. PROAIR [Concomitant]
     Indication: INHALATION THERAPY
     Dosage: UNKNOWN UNK

REACTIONS (4)
  - Nasopharyngitis [Unknown]
  - Sneezing [Not Recovered/Not Resolved]
  - Back pain [Unknown]
  - Off label use [Unknown]
